FAERS Safety Report 4558602-8 (Version None)
Quarter: 2005Q1

REPORT INFORMATION
  Report Type: 
  Country: None (occurrence: None)
  Receive Date: 20050121
  Receipt Date: 20050111
  Transmission Date: 20050727
  Serious: Yes (Other)
  Sender: FDA-Public Use
  Company Number: BR-ROCHE-392403

PATIENT
  Age: 66 Year
  Sex: Female
  Weight: 58 kg

DRUGS (2)
  1. ROACUTAN [Suspect]
     Indication: ACNE
     Route: 048
     Dates: start: 20040915, end: 20041015
  2. LIBIAM [Concomitant]
     Route: 048

REACTIONS (6)
  - HIGH DENSITY LIPOPROTEIN DECREASED [None]
  - INFLAMMATION [None]
  - LIP DRY [None]
  - PAIN [None]
  - VAGINAL BURNING SENSATION [None]
  - VAGINAL HAEMORRHAGE [None]
